FAERS Safety Report 8015802-2 (Version None)
Quarter: 2011Q4

REPORT INFORMATION
  Report Type: 
  Country: None (occurrence: None)
  Receive Date: 20111230
  Receipt Date: 20111216
  Transmission Date: 20120403
  Serious: Yes (Other)
  Sender: FDA-Public Use
  Company Number: JP-ROCHE-1025188

PATIENT
  Age: 42 Year
  Sex: Female

DRUGS (17)
  1. RABEPRAZOLE SODIUM [Concomitant]
     Dates: start: 20111214
  2. REMODELLIN [Concomitant]
     Dates: start: 20111214
  3. THEOLONG [Concomitant]
     Dates: start: 20111214
  4. ACETAMINOPHEN [Concomitant]
     Dates: start: 20111214
  5. LACTOSE [Concomitant]
     Dates: start: 20111214
  6. MAGNESIUM OXIDE [Concomitant]
     Dates: start: 20111216
  7. OMALIZUMAB [Suspect]
     Indication: ASTHMA
     Route: 058
     Dates: start: 20111207
  8. BONOTEO [Concomitant]
     Dates: start: 20111214
  9. LASIX [Concomitant]
     Dates: start: 20111214
  10. PROCATEROL HCL [Concomitant]
     Dates: start: 20111212
  11. MORPHINE [Concomitant]
     Dates: start: 20111214
  12. SINGULAIR [Concomitant]
     Dates: start: 20111214
  13. AMBROXOL HYDROCHLORIDE [Concomitant]
     Dates: start: 20111214
  14. DEXAMETHASONE [Concomitant]
     Dates: start: 20111214
  15. ASPARTATE CALCIUM [Concomitant]
     Dates: start: 20111214
  16. WARFARIN SODIUM [Concomitant]
     Dates: start: 20111212
  17. SYMBICORT [Concomitant]

REACTIONS (1)
  - PULMONARY THROMBOSIS [None]
